FAERS Safety Report 4742433-X (Version None)
Quarter: 2005Q3

REPORT INFORMATION
  Report Type: 
  Country: None (occurrence: None)
  Receive Date: 20050811
  Receipt Date: 20050727
  Transmission Date: 20060218
  Serious: Yes (Disabling)
  Sender: FDA-Public Use
  Company Number: JP-BRACCO-BRO-008945

PATIENT
  Sex: Female
  Weight: 3.15 kg

DRUGS (7)
  1. IOPAMIRON [Suspect]
     Indication: PATENT DUCTUS ARTERIOSUS
     Route: 050
     Dates: start: 20000807, end: 20000807
  2. IOPAMIRON [Suspect]
     Indication: CONGENITAL PULMONARY VALVE ATRESIA
     Route: 050
     Dates: start: 20000807, end: 20000807
  3. IOPAMIRON [Suspect]
     Route: 050
     Dates: start: 20000807, end: 20000807
  4. IOPAMIRON [Suspect]
  5. LIPLE [Concomitant]
     Route: 050
     Dates: start: 20000803, end: 20000815
  6. LASIX                              /00032601/ [Concomitant]
     Route: 050
     Dates: start: 20000803, end: 20000808
  7. CEFAMEZIN                          /00288502/ [Concomitant]
     Route: 050
     Dates: start: 20000807, end: 20000818

REACTIONS (8)
  - CYANOSIS NEONATAL [None]
  - DIALYSIS [None]
  - DISSEMINATED INTRAVASCULAR COAGULATION [None]
  - HYPOTENSION [None]
  - LATE METABOLIC ACIDOSIS OF NEWBORN [None]
  - NEONATAL HYPOTENSION [None]
  - RENAL FAILURE [None]
  - RENAL FAILURE NEONATAL [None]
